FAERS Safety Report 6018798-8 (Version None)
Quarter: 2008Q4

REPORT INFORMATION
  Report Type: 
  Country: None (occurrence: None)
  Receive Date: 20081222
  Receipt Date: 20081205
  Transmission Date: 20090506
  Serious: Yes (Death)
  Sender: FDA-Public Use
  Company Number: KV200801037

PATIENT
  Age: 72 Year
  Sex: Male
  Weight: 77.1 kg

DRUGS (11)
  1. ISOSORBIDE MONONITRATE [Suspect]
     Indication: CARDIAC DISORDER
     Dosage: 30
  2. GLIPIZIDE [Concomitant]
  3. AVAPRO [Concomitant]
  4. DIGOXIN [Concomitant]
  5. SPIRONOLACTONE [Concomitant]
  6. BISOPROLOL FUMARATE [Concomitant]
  7. LOVASTATIN [Concomitant]
  8. SIMVASTATIN [Concomitant]
  9. WARFARIN SODIUM [Concomitant]
  10. NITROGLYCERIN [Concomitant]
  11. AMIODARONE HCL [Concomitant]

REACTIONS (4)
  - CARDIAC FAILURE [None]
  - HYPOTENSION [None]
  - PNEUMONIA [None]
  - PRODUCT QUALITY ISSUE [None]
